FAERS Safety Report 7063369-8 (Version None)
Quarter: 2010Q4

REPORT INFORMATION
  Report Type: 
  Country: None (occurrence: None)
  Receive Date: 20101026
  Receipt Date: 20100726
  Transmission Date: 20110411
  Serious: No
  Sender: FDA-Public Use
  Company Number: US-PFIZER INC-2010094346

PATIENT
  Sex: Female
  Weight: 58.957 kg

DRUGS (4)
  1. LIPITOR [Suspect]
     Indication: C-REACTIVE PROTEIN INCREASED
     Dosage: 10 MG, 1X/DAY
     Route: 048
     Dates: start: 20100507, end: 20100619
  2. ATENOLOL [Concomitant]
     Indication: HYPERTENSION
     Dosage: 25 MG, DAILY
  3. ACETYLSALICYLIC ACID [Concomitant]
     Dosage: HALF A TABLET OF 81 MG DAILY
     Route: 048
  4. EVISTA [Concomitant]
     Indication: BONE DENSITY ABNORMAL
     Dosage: 60 MG, DAILY
     Route: 048

REACTIONS (1)
  - ABDOMINAL PAIN UPPER [None]
